FAERS Safety Report 10889942 (Version 1)
Quarter: 2015Q1

REPORT INFORMATION
  Report Type: Spontaneous
  Country: US (occurrence: US)
  Receive Date: 20150305
  Receipt Date: 20150305
  Transmission Date: 20150721
  Serious: Yes (Death)
  Sender: FDA-Public Use
  Company Number: US-BANPHARM-20153601

PATIENT
  Age: 55 Year
  Sex: Male

DRUGS (7)
  1. DIPHENHYDRAMINE UNKNOWN PRODUCT [Suspect]
     Active Substance: DIPHENHYDRAMINE
  2. COCAINE [Suspect]
     Active Substance: COCAINE
  3. CLONAZEPAM. [Suspect]
     Active Substance: CLONAZEPAM
  4. OXYCODONE [Suspect]
     Active Substance: OXYCODONE
  5. MEPROBAMATE. [Suspect]
     Active Substance: MEPROBAMATE
  6. METHADONE [Suspect]
     Active Substance: METHADONE HYDROCHLORIDE
  7. ALPRAZOLAM. [Suspect]
     Active Substance: ALPRAZOLAM

REACTIONS (2)
  - Exposure via ingestion [None]
  - Drug abuse [Fatal]
